FAERS Safety Report 15266851 (Version 2)
Quarter: 2018Q4

REPORT INFORMATION
  Report Type: Spontaneous
  Country: JP (occurrence: JP)
  Receive Date: 20180810
  Receipt Date: 20181005
  Transmission Date: 20190204
  Serious: Yes (Other)
  Sender: FDA-Public Use
  Company Number: JP-009507513-1804JPN000168

PATIENT
  Age: 11 Month
  Sex: Female

DRUGS (49)
  1. DOXORUBICIN HYDROCHLORIDE. [Suspect]
     Active Substance: DOXORUBICIN HYDROCHLORIDE
     Indication: UNDIFFERENTIATED SARCOMA
     Dosage: 17 MG, QD
     Route: 042
     Dates: start: 20170914, end: 20170915
  2. UROMITEXAN [Concomitant]
     Active Substance: MESNA
     Dosage: 480 MG, UNK
     Dates: start: 20171005, end: 20171009
  3. CEFEPIME HYDROCHLORIDE. [Concomitant]
     Active Substance: CEFEPIME HYDROCHLORIDE
     Dosage: UNK
     Dates: start: 20170918
  4. GRANISETRON [Concomitant]
     Active Substance: GRANISETRON
     Dosage: UNK
     Dates: start: 20170914, end: 20170916
  5. GRANISETRON [Concomitant]
     Active Substance: GRANISETRON
     Dosage: UNK
     Dates: start: 20171116, end: 20171120
  6. GRANISETRON [Concomitant]
     Active Substance: GRANISETRON
     Dosage: UNK
     Dates: start: 20171209, end: 20171210
  7. UROMITEXAN [Concomitant]
     Active Substance: MESNA
     Dosage: 630 MG, UNK
     Dates: start: 20171024, end: 20171024
  8. FOSAPREPITANT DIMEGLUMINE. [Suspect]
     Active Substance: FOSAPREPITANT DIMEGLUMINE
     Indication: PROPHYLAXIS OF NAUSEA AND VOMITING
     Dosage: 30 MG, UNK
     Route: 041
     Dates: start: 20170914, end: 20170914
  9. ONCOVIN [Suspect]
     Active Substance: VINCRISTINE SULFATE
     Indication: UNDIFFERENTIATED SARCOMA
     Dosage: 0.92 MG, QD
     Route: 042
     Dates: start: 20170914, end: 20170914
  10. ONCOVIN [Suspect]
     Active Substance: VINCRISTINE SULFATE
     Dosage: 0.86 MG, QD
     Route: 042
     Dates: start: 20171024, end: 20171024
  11. DOXORUBICIN HYDROCHLORIDE. [Suspect]
     Active Substance: DOXORUBICIN HYDROCHLORIDE
     Dosage: 16 MG, QD
     Route: 042
     Dates: start: 20171024, end: 20171025
  12. ENDOXAN [Suspect]
     Active Substance: CYCLOPHOSPHAMIDE
     Dosage: 360 MG, QD
     Route: 065
     Dates: start: 20171208, end: 20171208
  13. ETOPOSIDE. [Suspect]
     Active Substance: ETOPOSIDE
     Indication: UNDIFFERENTIATED SARCOMA
     Dosage: 44 MG, QD
     Route: 042
     Dates: start: 20171005, end: 20171009
  14. ALOXI [Concomitant]
     Active Substance: PALONOSETRON HYDROCHLORIDE
     Dosage: UNK
     Dates: start: 20171208, end: 20171208
  15. DECADRON (DEXAMETHASONE SODIUM PHOSPHATE) [Concomitant]
     Active Substance: DEXAMETHASONE SODIUM PHOSPHATE
     Dosage: 1.32 MG, UNK
     Dates: start: 20171208, end: 20171210
  16. LASIX [Concomitant]
     Active Substance: FUROSEMIDE
     Dosage: UNK
     Dates: start: 20171115, end: 20171118
  17. FOSAPREPITANT DIMEGLUMINE. [Suspect]
     Active Substance: FOSAPREPITANT DIMEGLUMINE
     Dosage: 30 MG, UNK
     Route: 041
     Dates: start: 20171208, end: 20171208
  18. FOSAPREPITANT DIMEGLUMINE. [Suspect]
     Active Substance: FOSAPREPITANT DIMEGLUMINE
     Dosage: 30 MG, UNK
     Route: 041
     Dates: start: 20171226, end: 20171226
  19. FOSAPREPITANT DIMEGLUMINE. [Suspect]
     Active Substance: FOSAPREPITANT DIMEGLUMINE
     Dosage: UNK
  20. UROMITEXAN [Concomitant]
     Active Substance: MESNA
     Dosage: 660 MG, UNK
     Dates: start: 20170914, end: 20170914
  21. MAGNESIUM OXIDE. [Concomitant]
     Active Substance: MAGNESIUM OXIDE
     Dosage: 600 MG, UNK
  22. ONCOVIN [Suspect]
     Active Substance: VINCRISTINE SULFATE
     Dosage: 0.60 MG, QD
     Route: 042
     Dates: start: 20171208, end: 20171208
  23. ENDOXAN [Suspect]
     Active Substance: CYCLOPHOSPHAMIDE
     Dosage: 520 MG, QD
     Route: 065
     Dates: start: 20171024, end: 20171024
  24. GRANISETRON [Concomitant]
     Active Substance: GRANISETRON
     Dosage: UNK
     Dates: start: 20171005, end: 20171010
  25. MAGNESIUM OXIDE. [Concomitant]
     Active Substance: MAGNESIUM OXIDE
     Dosage: 400 MG, UNK
  26. ENDOXAN [Suspect]
     Active Substance: CYCLOPHOSPHAMIDE
     Indication: UNDIFFERENTIATED SARCOMA
     Dosage: 550 MG, QD
     Route: 065
     Dates: start: 20170914, end: 20170914
  27. IFOMIDE [Suspect]
     Active Substance: IFOSFAMIDE
     Dosage: 770 MG, QD
     Route: 042
     Dates: start: 20171115, end: 20171119
  28. IFOMIDE [Suspect]
     Active Substance: IFOSFAMIDE
     Dosage: 530 MG, QD
     Route: 042
     Dates: start: 20171226, end: 20171230
  29. ETOPOSIDE. [Suspect]
     Active Substance: ETOPOSIDE
     Dosage: 43 MG, QD
     Route: 042
     Dates: start: 20171115, end: 20171119
  30. MAGNESIUM OXIDE. [Concomitant]
     Active Substance: MAGNESIUM OXIDE
     Dosage: 450 MG, UNK
     Dates: start: 20170914
  31. MAGNESIUM OXIDE. [Concomitant]
     Active Substance: MAGNESIUM OXIDE
     Dosage: 300 MG, UNK
  32. HACHIAZULE (SODIUM BICARBONATE (+) SODIUM GUALENATE) [Concomitant]
     Dosage: UNK
  33. FOSAPREPITANT DIMEGLUMINE. [Suspect]
     Active Substance: FOSAPREPITANT DIMEGLUMINE
     Dosage: 30 MG, UNK
     Route: 041
     Dates: start: 20171024, end: 20171024
  34. IFOMIDE [Suspect]
     Active Substance: IFOSFAMIDE
     Indication: UNDIFFERENTIATED SARCOMA
     Dosage: 790 MG, QD
     Route: 042
     Dates: start: 20171005, end: 20171009
  35. ALOXI [Concomitant]
     Active Substance: PALONOSETRON HYDROCHLORIDE
     Dosage: UNK
     Dates: start: 20171115, end: 20171115
  36. DECADRON (DEXAMETHASONE SODIUM PHOSPHATE) [Concomitant]
     Active Substance: DEXAMETHASONE SODIUM PHOSPHATE
     Dosage: 0.66 MG, UNK
     Dates: start: 20171226, end: 20171230
  37. UROMITEXAN [Concomitant]
     Active Substance: MESNA
     Dosage: 480 MG, UNK
     Dates: start: 20171115, end: 20171119
  38. DAIPHEN [Concomitant]
     Active Substance: SULFAMETHOXAZOLE\TRIMETHOPRIM
     Dosage: UNK
  39. FOSAPREPITANT DIMEGLUMINE. [Suspect]
     Active Substance: FOSAPREPITANT DIMEGLUMINE
     Dosage: 30 MG, UNK
     Route: 041
     Dates: start: 20171005, end: 20171005
  40. FOSAPREPITANT DIMEGLUMINE. [Suspect]
     Active Substance: FOSAPREPITANT DIMEGLUMINE
     Dosage: 30 MG, UNK
     Route: 041
     Dates: start: 20171115, end: 20171115
  41. DOXORUBICIN HYDROCHLORIDE. [Suspect]
     Active Substance: DOXORUBICIN HYDROCHLORIDE
     Dosage: 11 MG, QD
     Route: 042
     Dates: start: 20171208, end: 20171209
  42. ETOPOSIDE. [Suspect]
     Active Substance: ETOPOSIDE
     Dosage: 29 MG, QD
     Route: 042
     Dates: start: 20171226, end: 20171230
  43. GRANISETRON [Concomitant]
     Active Substance: GRANISETRON
     Dosage: UNK
     Dates: start: 20171024, end: 20171026
  44. GRANISETRON [Concomitant]
     Active Substance: GRANISETRON
     Dosage: UNK
     Dates: start: 20171227, end: 20171231
  45. ALOXI [Concomitant]
     Active Substance: PALONOSETRON HYDROCHLORIDE
     Dosage: UNK
     Dates: start: 20171226, end: 20171226
  46. UROMITEXAN [Concomitant]
     Active Substance: MESNA
     Dosage: 450 MG, UNK
     Dates: start: 20171208, end: 20171208
  47. UROMITEXAN [Concomitant]
     Active Substance: MESNA
     Dosage: 330 MG, UNK
     Dates: start: 20171226, end: 20171230
  48. LASIX [Concomitant]
     Active Substance: FUROSEMIDE
     Dosage: UNK
     Dates: start: 20171208, end: 20171208
  49. LASIX [Concomitant]
     Active Substance: FUROSEMIDE
     Dosage: UNK
     Dates: start: 20171226, end: 20171227

REACTIONS (8)
  - Anaemia [Unknown]
  - Febrile neutropenia [Unknown]
  - Neutrophil count decreased [Unknown]
  - Platelet count decreased [Unknown]
  - Aspartate aminotransferase increased [Recovered/Resolved]
  - Alanine aminotransferase increased [Recovered/Resolved]
  - Seizure [Unknown]
  - Hyponatraemia [Unknown]

NARRATIVE: CASE EVENT DATE: 20170920
